FAERS Safety Report 14120181 (Version 2)
Quarter: 2017Q4

REPORT INFORMATION
  Report Type: Spontaneous
  Country: DE (occurrence: DE)
  Receive Date: 20171024
  Receipt Date: 20171103
  Transmission Date: 20180321
  Serious: Yes (Other)
  Sender: FDA-Public Use
  Company Number: DE-TEVA-816724GER

PATIENT
  Age: 82 Year
  Sex: Female

DRUGS (3)
  1. TERBUTALIN [Suspect]
     Active Substance: TERBUTALINE
     Route: 065
  2. NEBIVOLOL. [Suspect]
     Active Substance: NEBIVOLOL
     Route: 065
  3. SIMVASTATIN. [Suspect]
     Active Substance: SIMVASTATIN
     Route: 065

REACTIONS (1)
  - Linear IgA disease [Recovered/Resolved]
